FAERS Safety Report 15536128 (Version 1)
Quarter: 2018Q4

REPORT INFORMATION
  Report Type: Spontaneous
  Country: US (occurrence: US)
  Receive Date: 20181015
  Receipt Date: 20181015
  Transmission Date: 20190205
  Serious: No
  Sender: FDA-Public Use
  Company Number: None

PATIENT
  Age: 74 Year
  Sex: Female

DRUGS (1)
  1. REPATHA [Suspect]
     Active Substance: EVOLOCUMAB
     Dates: start: 201704

REACTIONS (4)
  - Hernia repair [None]
  - Memory impairment [None]
  - Post procedural complication [None]
  - Post procedural sepsis [None]

NARRATIVE: CASE EVENT DATE: 20181011
